FAERS Safety Report 10583730 (Version 2)
Quarter: 2014Q4

REPORT INFORMATION
  Report Type: Spontaneous
  Country: US (occurrence: None)
  Receive Date: 20141112
  Receipt Date: 20141205
  Transmission Date: 20150529
  Serious: Yes (Other)
  Sender: FDA-Public Use
  Company Number: 2014-US-014398

PATIENT
  Age: 22 Year
  Sex: Male
  Weight: 117.9 kg

DRUGS (2)
  1. XYREM [Suspect]
     Active Substance: SODIUM OXYBATE
     Indication: CATAPLEXY
     Route: 048
     Dates: start: 2013, end: 201409
  2. XYREM [Suspect]
     Active Substance: SODIUM OXYBATE
     Indication: NARCOLEPSY
     Route: 048
     Dates: start: 2013, end: 201409

REACTIONS (5)
  - Seizure [None]
  - Aphasia [None]
  - Mental impairment [None]
  - Confusional state [None]
  - Unevaluable event [None]

NARRATIVE: CASE EVENT DATE: 201402
